FAERS Safety Report 7579506-2 (Version None)
Quarter: 2011Q2

REPORT INFORMATION
  Report Type: 
  Country: None (occurrence: None)
  Receive Date: 20110629
  Receipt Date: 20110608
  Transmission Date: 20111010
  Serious: Yes (Disabling, Other)
  Sender: FDA-Public Use
  Company Number: US-BAYER-2011-006777

PATIENT
  Age: 58 Year
  Sex: Male
  Weight: 73 kg

DRUGS (17)
  1. TRASYLOL [Suspect]
     Indication: CORONARY ARTERY BYPASS
     Dosage: 100 ML, ONCE
     Route: 042
     Dates: start: 20041230, end: 20041230
  2. DOBUTREX [Concomitant]
     Dosage: UNK
     Dates: start: 20041230
  3. TRASYLOL [Suspect]
     Indication: AORTIC VALVE REPLACEMENT
  4. NAPROXEN [Concomitant]
     Dosage: 500 MG, BID
     Route: 048
  5. NEOSYNEPHRINE [Concomitant]
     Dosage: UNK
     Dates: start: 20041221
  6. ASPIRIN [Concomitant]
     Dosage: UNK
     Dates: start: 20041222
  7. COREG [Concomitant]
     Dosage: UNK
     Dates: start: 20041222
  8. LOPRESSOR [Concomitant]
     Dosage: UNK
     Dates: start: 20041222
  9. HEPARIN [Concomitant]
     Dosage: UNK
     Dates: start: 20041222
  10. LIPITOR [Concomitant]
     Dosage: UNK
     Dates: start: 20041222
  11. VANCOMYCIN [Concomitant]
     Dosage: 1 G, UNK
     Route: 042
     Dates: start: 20041230
  12. LASIX [Concomitant]
     Dosage: 10 MG, UNK
     Route: 042
     Dates: start: 20041230
  13. NIPRIDE [Concomitant]
     Dosage: UNK
     Dates: start: 20041230
  14. LEVOPHED [Concomitant]
     Dosage: 120 UNK, UNK
  15. ZOSYN [Concomitant]
     Dosage: UNK
     Dates: start: 20041222
  16. EPHEDRINE [Concomitant]
     Dosage: UNK
     Dates: start: 20041221
  17. VANCOMYCIN [Concomitant]
     Dosage: 1 UNK, UNK
     Route: 042
     Dates: start: 20041228

REACTIONS (15)
  - FEAR [None]
  - DEPRESSION [None]
  - EMOTIONAL DISTRESS [None]
  - FEAR OF DEATH [None]
  - ANXIETY [None]
  - UNEVALUABLE EVENT [None]
  - MULTI-ORGAN FAILURE [None]
  - PAIN [None]
  - PARALYSIS [None]
  - NERVOUSNESS [None]
  - RENAL INJURY [None]
  - CEREBROVASCULAR ACCIDENT [None]
  - INJURY [None]
  - PSYCHIATRIC SYMPTOM [None]
  - RENAL FAILURE [None]
